FAERS Safety Report 23783604 (Version 1)
Quarter: 2024Q2

REPORT INFORMATION
  Report Type: Report from Study
  Country: US (occurrence: US)
  Receive Date: 20240425
  Receipt Date: 20240425
  Transmission Date: 20240716
  Serious: Yes (Other)
  Sender: FDA-Public Use
  Company Number: US-ABBVIE-4763706

PATIENT
  Sex: Female
  Weight: 76.657 kg

DRUGS (2)
  1. SYNTHROID [Suspect]
     Active Substance: LEVOTHYROXINE SODIUM
     Indication: Malnutrition
     Dosage: FORM STRENGTH: 175 MICROGRAM
     Route: 048
     Dates: start: 2019
  2. SYNTHROID [Suspect]
     Active Substance: LEVOTHYROXINE SODIUM
     Indication: Malnutrition
     Dosage: 1/2 MCG - 200 MCG
     Route: 048

REACTIONS (4)
  - Premature separation of placenta [Recovered/Resolved]
  - Off label use [Unknown]
  - Live birth [Unknown]
  - Maternal exposure during pregnancy [Unknown]
